FAERS Safety Report 17446214 (Version 1)
Quarter: 2020Q1

REPORT INFORMATION
  Report Type: Spontaneous
  Country: FR (occurrence: FR)
  Receive Date: 20200221
  Receipt Date: 20200221
  Transmission Date: 20200409
  Serious: Yes (Life-Threatening, Hospitalization, Disabling)
  Sender: FDA-Public Use
  Company Number: FR-JNJFOC-20191209854

PATIENT
  Age: 74 Year
  Sex: Female
  Weight: 73 kg

DRUGS (1)
  1. RIVAROXABAN [Suspect]
     Active Substance: RIVAROXABAN
     Indication: ATRIAL FIBRILLATION
     Dosage: 15 MG, QD
     Route: 048
     Dates: start: 20181127, end: 20190914

REACTIONS (3)
  - Subdural haematoma [Recovered/Resolved with Sequelae]
  - Spinal cord compression [Recovered/Resolved with Sequelae]
  - Spinal cord injury thoracic [Recovered/Resolved with Sequelae]

NARRATIVE: CASE EVENT DATE: 20190913
